FAERS Safety Report 5103437-0 (Version None)
Quarter: 2006Q3

REPORT INFORMATION
  Report Type: 
  Country: None (occurrence: None)
  Receive Date: 20060731
  Receipt Date: 20060511
  Transmission Date: 20061208
  Serious: Yes (Hospitalization)
  Sender: FDA-Public Use
  Company Number: US-JNJFOC-20060204916

PATIENT
  Age: 15 Year
  Sex: Male
  Weight: 66.2252 kg

DRUGS (1)
  1. RISPERDAL [Suspect]
     Indication: INTENTIONAL OVERDOSE
     Dosage: 3 MG, 5 IN 1 TOTAL
     Dates: start: 20060217, end: 20060217

REACTIONS (2)
  - OVERDOSE [None]
  - TACHYCARDIA [None]
